FAERS Safety Report 14772899 (Version 5)
Quarter: 2018Q2

REPORT INFORMATION
  Report Type: Spontaneous
  Country: US (occurrence: US)
  Receive Date: 20180418
  Receipt Date: 20180524
  Transmission Date: 20180711
  Serious: Yes (Other)
  Sender: FDA-Public Use
  Company Number: US-PFIZER INC-2018156971

PATIENT
  Age: 61 Year
  Sex: Female
  Weight: 75 kg

DRUGS (1)
  1. XELJANZ XR [Suspect]
     Active Substance: TOFACITINIB CITRATE
     Indication: RHEUMATOID ARTHRITIS
     Dosage: 11 MG, 1X/DAY
     Route: 048
     Dates: start: 201710, end: 20180331

REACTIONS (4)
  - Joint range of motion decreased [Unknown]
  - Disease progression [Unknown]
  - Peripheral swelling [Not Recovered/Not Resolved]
  - Rheumatoid arthritis [Unknown]
